FAERS Safety Report 16314858 (Version 1)
Quarter: 2019Q2

REPORT INFORMATION
  Report Type: Spontaneous
  Country: GB (occurrence: GB)
  Receive Date: 20190515
  Receipt Date: 20190515
  Transmission Date: 20190711
  Serious: Yes (Other)
  Sender: FDA-Public Use
  Company Number: GB-PFIZER INC-2019200073

PATIENT
  Age: 42 Year
  Sex: Female
  Weight: 50 kg

DRUGS (2)
  1. METHADONE [Concomitant]
     Active Substance: METHADONE HYDROCHLORIDE
     Dosage: 40 ML, UNK
     Dates: start: 20190403
  2. IBUPROFEN. [Suspect]
     Active Substance: IBUPROFEN
     Dosage: 200 MG, UNK
     Dates: start: 20190403

REACTIONS (2)
  - Asthma [Unknown]
  - Pharyngeal swelling [Unknown]

NARRATIVE: CASE EVENT DATE: 20190404
